FAERS Safety Report 21835684 (Version 1)
Quarter: 2023Q1

REPORT INFORMATION
  Report Type: Report from Study
  Country: US (occurrence: US)
  Receive Date: 20230109
  Receipt Date: 20230109
  Transmission Date: 20230418
  Serious: No
  Sender: FDA-Public Use
  Company Number: US-ABBVIE-4225743

PATIENT
  Sex: Female

DRUGS (1)
  1. SKYRIZI [Suspect]
     Active Substance: RISANKIZUMAB-RZAA
     Indication: Psoriasis
     Dosage: EVENT START WAS //2022
     Route: 058
     Dates: start: 20221102

REACTIONS (3)
  - Dry skin [Unknown]
  - Erythema [Unknown]
  - Urinary tract infection [Unknown]
